FAERS Safety Report 15711278 (Version 1)
Quarter: 2018Q4

REPORT INFORMATION
  Report Type: Spontaneous
  Country: US (occurrence: US)
  Receive Date: 20181211
  Receipt Date: 20181211
  Transmission Date: 20190205
  Serious: No
  Sender: FDA-Public Use
  Company Number: US-BIOMARINAP-US-2018-121070

PATIENT
  Sex: Female
  Weight: 14.2 kg

DRUGS (1)
  1. NAGLAZYME [Suspect]
     Active Substance: GALSULFASE
     Indication: MUCOPOLYSACCHARIDOSIS VI
     Dosage: 15 MILLILITER, QW
     Route: 042
     Dates: start: 20180509

REACTIONS (1)
  - Pharyngitis streptococcal [Recovered/Resolved]
